FAERS Safety Report 9776540 (Version 1)
Quarter: 2013Q4

REPORT INFORMATION
  Report Type: Report from Study
  Country: US (occurrence: US)
  Receive Date: 20131220
  Receipt Date: 20131220
  Transmission Date: 20140711
  Serious: Yes (Other)
  Sender: FDA-Public Use
  Company Number: US-ABBVIE-13P-163-1181652-00

PATIENT
  Age: 33 Year
  Sex: Female

DRUGS (9)
  1. HUMIRA [Suspect]
     Indication: PSORIATIC ARTHROPATHY
  2. HUMIRA [Suspect]
  3. HUMIRA [Suspect]
     Dates: start: 201309
  4. CLOMID [Suspect]
     Indication: INFERTILITY
  5. RANITIDINE [Concomitant]
     Indication: PRODUCT USED FOR UNKNOWN INDICATION
  6. ZYRTEC [Concomitant]
     Indication: HYPERSENSITIVITY
  7. SINGULAIR [Concomitant]
     Indication: ASTHMA
  8. SINGULAIR [Concomitant]
     Indication: HYPERSENSITIVITY
  9. OMEPRAZOLE [Concomitant]
     Indication: DYSPEPSIA
     Dates: start: 2013

REACTIONS (15)
  - Abortion spontaneous [Unknown]
  - Drug ineffective [Unknown]
  - Arthritis [Unknown]
  - Infertility [Unknown]
  - Fatigue [Unknown]
  - Temperature intolerance [Unknown]
  - Dysphonia [Unknown]
  - Onychoclasis [Unknown]
  - Abdominal pain [Unknown]
  - Ovarian cyst [Unknown]
  - Ovarian cyst [Recovered/Resolved]
  - Vitamin D decreased [Unknown]
  - Sinusitis [Unknown]
  - Appendix disorder [Unknown]
  - Cellulitis [Unknown]
